FAERS Safety Report 5068652-3 (Version None)
Quarter: 2006Q3

REPORT INFORMATION
  Report Type: 
  Country: None (occurrence: None)
  Receive Date: 20060802
  Receipt Date: 20060126
  Transmission Date: 20061208
  Serious: No
  Sender: FDA-Public Use
  Company Number: US-BRISTOL-MYERS SQUIBB COMPANY-13260294

PATIENT
  Age: 81 Year
  Sex: Female
  Weight: 47 kg

DRUGS (6)
  1. COUMADIN [Suspect]
     Indication: MITRAL VALVE REPLACEMENT
     Dates: start: 19950101
  2. CRANBERRY JUICE [Concomitant]
     Dosage: DURATION OF THERAPY:  ^A VERY LONG TIME^;  3-4 GLASSES A WEEK
  3. EFFEXOR [Concomitant]
  4. TOPROL-XL [Concomitant]
  5. REMERON [Concomitant]
  6. FUROSEMIDE [Concomitant]

REACTIONS (1)
  - INTERNATIONAL NORMALISED RATIO FLUCTUATION [None]
